FAERS Safety Report 12164191 (Version 1)
Quarter: 2016Q1

REPORT INFORMATION
  Report Type: Spontaneous
  Country: US (occurrence: US)
  Receive Date: 20160309
  Receipt Date: 20160309
  Transmission Date: 20160526
  Serious: No
  Sender: FDA-Public Use
  Company Number: US-ROCHE-1642238

PATIENT
  Sex: Female

DRUGS (1)
  1. XOLAIR [Suspect]
     Active Substance: OMALIZUMAB
     Indication: ASTHMA
     Route: 058
     Dates: start: 20141002, end: 20151002

REACTIONS (3)
  - Injection site erythema [Not Recovered/Not Resolved]
  - Treatment failure [Unknown]
  - Injection site swelling [Not Recovered/Not Resolved]
